FAERS Safety Report 9419862 (Version 2)
Quarter: 2013Q3

REPORT INFORMATION
  Report Type: Spontaneous
  Country: JP (occurrence: JP)
  Receive Date: 20130725
  Receipt Date: 20130806
  Transmission Date: 20140515
  Serious: Yes (Hospitalization)
  Sender: FDA-Public Use
  Company Number: JP-VERTEX PHARMACEUTICALS INC-2013-008246

PATIENT
  Age: 64 Year
  Sex: Female

DRUGS (20)
  1. TELAVIC [Suspect]
     Indication: CHRONIC HEPATITIS C
     Dosage: 1500 MG, QD
     Route: 048
     Dates: start: 20130306, end: 201305
  2. REBETOL [Concomitant]
     Dosage: 400 MG, QD
     Route: 048
     Dates: start: 20130306, end: 20130717
  3. PEGINTRON [Concomitant]
     Dosage: 80 ?G, UNK
     Route: 058
     Dates: start: 20130306, end: 20130717
  4. ARTIST [Concomitant]
     Route: 048
  5. ADALAT CR [Concomitant]
     Route: 048
  6. LENDORMIN [Concomitant]
     Route: 048
  7. SENNOSIDE [Concomitant]
     Route: 048
  8. BLOPRESS [Concomitant]
     Route: 048
  9. TAKEPRON [Concomitant]
  10. EPADEL-S [Concomitant]
     Route: 048
  11. LIVALO [Concomitant]
     Route: 048
  12. PRIMPERAN [Concomitant]
  13. LOXOPROFEN [Concomitant]
     Route: 048
  14. SEISHOKU [Concomitant]
     Route: 051
  15. APRINOR [Concomitant]
     Route: 048
  16. CALONAL [Concomitant]
  17. GASMOTIN [Concomitant]
     Route: 048
  18. CATLEP [Concomitant]
     Route: 061
  19. BENZALIN [Concomitant]
     Route: 048
  20. RINDERON-VG [Concomitant]
     Route: 061

REACTIONS (1)
  - Cerebral haemorrhage [Not Recovered/Not Resolved]
